FAERS Safety Report 5068739-5 (Version None)
Quarter: 2006Q3

REPORT INFORMATION
  Report Type: 
  Country: None (occurrence: None)
  Receive Date: 20060802
  Receipt Date: 20060313
  Transmission Date: 20061208
  Serious: Yes (Hospitalization, Other)
  Sender: FDA-Public Use
  Company Number: US-BRISTOL-MYERS SQUIBB COMPANY-13312657

PATIENT
  Sex: Male

DRUGS (4)
  1. COUMADIN [Suspect]
  2. HYDROCHLOROTHIAZIDE [Concomitant]
     Indication: DEEP VEIN THROMBOSIS
  3. CLARITIN [Concomitant]
  4. ACETAMINOPHEN [Concomitant]

REACTIONS (3)
  - INTERNATIONAL NORMALISED RATIO DECREASED [None]
  - THROMBOSIS [None]
  - TOOTH ABSCESS [None]
